FAERS Safety Report 4350264-8 (Version None)
Quarter: 2004Q2

REPORT INFORMATION
  Report Type: 
  Country: None (occurrence: None)
  Receive Date: 20040426
  Receipt Date: 20040419
  Transmission Date: 20050107
  Serious: Yes (Other)
  Sender: FDA-Public Use
  Company Number: GB-SHR-04-024141

PATIENT
  Age: 45 Year
  Sex: Female
  Weight: 60 kg

DRUGS (1)
  1. MIRENA [Suspect]
     Dosage: 20 UG/DAY, CONT,INTRA-UTERINE
     Route: 015
     Dates: start: 20040305

REACTIONS (3)
  - ABDOMINAL DISTENSION [None]
  - BREAST PAIN [None]
  - MOOD ALTERED [None]
